FAERS Safety Report 7137995-1 (Version None)
Quarter: 2010Q4

REPORT INFORMATION
  Report Type: 
  Country: None (occurrence: None)
  Receive Date: 20101206
  Receipt Date: 20101126
  Transmission Date: 20110411
  Serious: Yes (Death, Hospitalization)
  Sender: FDA-Public Use
  Company Number: MX-SANOFI-AVENTIS-2010SA072134

PATIENT
  Age: 78 Year
  Sex: Female

DRUGS (1)
  1. INSULIN GLARGINE [Suspect]
     Route: 058
     Dates: start: 20020101, end: 20100101

REACTIONS (2)
  - CONVULSION [None]
  - PULMONARY OEDEMA [None]
